FAERS Safety Report 7423962-7 (Version None)
Quarter: 2011Q2

REPORT INFORMATION
  Report Type: 
  Country: None (occurrence: None)
  Receive Date: 20110419
  Receipt Date: 20110412
  Transmission Date: 20111010
  Serious: Yes (Hospitalization)
  Sender: FDA-Public Use
  Company Number: B0703808A

PATIENT
  Sex: Male

DRUGS (9)
  1. VALTREX [Suspect]
     Indication: ORAL HERPES
     Dosage: 1000MG PER DAY
     Route: 048
     Dates: start: 20110228, end: 20110228
  2. PELEX [Concomitant]
     Indication: NASOPHARYNGITIS
     Dosage: 3G PER DAY
     Route: 048
  3. ZOVIRAX [Concomitant]
     Route: 042
  4. DEPAS [Concomitant]
     Indication: ANXIETY
     Dosage: .5MG PER DAY
     Route: 048
  5. DIET PILL UNSPECIFIED [Concomitant]
     Indication: LIPIDS ABNORMAL
     Dosage: 10MG PER DAY
     Route: 048
  6. CHINESE MEDICINE [Concomitant]
     Indication: NASOPHARYNGITIS
     Dosage: 7.5MG PER DAY
     Route: 048
  7. RABEPRAZOLE SODIUM [Concomitant]
     Indication: GASTRIC ULCER
     Dosage: 20MG PER DAY
     Route: 048
  8. ATENOLOL [Concomitant]
     Indication: HYPERTENSION
     Dosage: 25MG PER DAY
     Route: 048
  9. IBRUPROFEN [Concomitant]
     Indication: ANTIPYRESIS
     Dosage: 300MG PER DAY
     Route: 048

REACTIONS (5)
  - PYREXIA [None]
  - ARTHRALGIA [None]
  - CSF PROTEIN INCREASED [None]
  - ALTERED STATE OF CONSCIOUSNESS [None]
  - DELIRIUM [None]
